FAERS Safety Report 10380372 (Version 1)
Quarter: 2014Q1

REPORT INFORMATION
  Report Type: Spontaneous
  Country: US (occurrence: None)
  Receive Date: 20140306
  Receipt Date: 20140306
  Transmission Date: 20141002
  Serious: Yes (Hospitalization)
  Sender: FDA-Public Use
  Company Number: 163-21880-13113798

PATIENT
  Age: 82 Year
  Sex: Female
  Weight: 60.3 kg

DRUGS (15)
  1. REVLIMID [Suspect]
     Indication: MYELODYSPLASTIC SYNDROME
     Dosage: 5 MG, 21 IN 21 D, PO
     Route: 048
     Dates: start: 201306
  2. ASPIRIN (ACETYLSALICYLIC ACID) [Concomitant]
  3. DIGOXIN [Concomitant]
  4. LISINOPRIL [Concomitant]
  5. GABAPENTIN [Concomitant]
  6. PROPAFENONE HCL (PROPAFENONE HYDROCHLORIDE) [Concomitant]
  7. ATIVAN (LORAZEPAM) [Concomitant]
  8. CENTRUM MULTIVITAMINS (CENTRUM) [Concomitant]
  9. NEXIUM (ESOMEPRAZOLE) [Concomitant]
  10. HYDROCODONE/ACETAMINOPHEN (REMEDEINE) [Concomitant]
  11. KIONEX (SODIUM POLYSTYRENE SULFONATE) [Concomitant]
  12. LIDODERM (LIDOCAINE) [Concomitant]
  13. SPS (SODIUM POLYSTYRENE SULFONATE) [Concomitant]
  14. PREDNISONE [Concomitant]
  15. LEVOFLOXACIN [Concomitant]

REACTIONS (2)
  - Spinal fracture [None]
  - Fall [None]
